FAERS Safety Report 12088417 (Version 1)
Quarter: 2016Q1

REPORT INFORMATION
  Report Type: Spontaneous
  Country: US (occurrence: US)
  Receive Date: 20160218
  Receipt Date: 20160218
  Transmission Date: 20160526
  Serious: Yes (Death)
  Sender: FDA-Public Use
  Company Number: US-SERB S.A.S.-1048024

PATIENT
  Age: 40 Year
  Sex: Male

DRUGS (1)
  1. CYANOKIT [Suspect]
     Active Substance: HYDROXOCOBALAMIN
     Indication: RESPIRATORY FUME INHALATION DISORDER

REACTIONS (2)
  - Death [Fatal]
  - Rash erythematous [Unknown]
